FAERS Safety Report 6878315-7 (Version None)
Quarter: 2010Q3

REPORT INFORMATION
  Report Type: 
  Country: None (occurrence: None)
  Receive Date: 20100728
  Receipt Date: 20100713
  Transmission Date: 20110219
  Serious: No
  Sender: FDA-Public Use
  Company Number: US-TEVA-242159USA

PATIENT
  Sex: Female
  Weight: 85.352 kg

DRUGS (2)
  1. AZILECT [Suspect]
     Indication: PARKINSON'S DISEASE
     Route: 048
     Dates: start: 20100601
  2. STALEVO 100 [Concomitant]

REACTIONS (1)
  - FATIGUE [None]
